FAERS Safety Report 7501434-9 (Version None)
Quarter: 2011Q2

REPORT INFORMATION
  Report Type: 
  Country: None (occurrence: None)
  Receive Date: 20110524
  Receipt Date: 20110516
  Transmission Date: 20111010
  Serious: Yes (Hospitalization, Other)
  Sender: FDA-Public Use
  Company Number: PHHO2011FR08437

PATIENT
  Sex: Male
  Weight: 22 kg

DRUGS (2)
  1. ELSPAR [Concomitant]
     Dosage: 8650 UL, UNK
     Route: 042
     Dates: start: 20110412, end: 20110504
  2. GLEEVEC [Suspect]
     Indication: CHRONIC MYELOID LEUKAEMIA
     Dosage: 300 MG/M2, DAILY
     Route: 048
     Dates: start: 20110408, end: 20110512

REACTIONS (1)
  - HEPATIC STEATOSIS [None]
